FAERS Safety Report 20742348 (Version 1)
Quarter: 2022Q2

REPORT INFORMATION
  Report Type: Spontaneous
  Country: HR (occurrence: HR)
  Receive Date: 20220424
  Receipt Date: 20220424
  Transmission Date: 20220720
  Serious: Yes (Other)
  Sender: FDA-Public Use
  Company Number: None

PATIENT
  Sex: Female

DRUGS (2)
  1. QUETIAPINE [Suspect]
     Active Substance: QUETIAPINE
     Dosage: 500MG, FREQUENCY TIME 1DAYS, DURATION 1DAYS
     Route: 048
     Dates: start: 20220227, end: 20220227
  2. DIAZEPAM [Suspect]
     Active Substance: DIAZEPAM
     Dosage: 50MG, FREQUENCY TIME 1DAYS, DURATION 1DAYS.
     Route: 048
     Dates: start: 20220227, end: 20220227

REACTIONS (3)
  - Somnolence [Unknown]
  - Suicide attempt [Unknown]
  - Intentional overdose [Unknown]

NARRATIVE: CASE EVENT DATE: 20220227
